FAERS Safety Report 23853571 (Version 2)
Quarter: 2024Q2

REPORT INFORMATION
  Report Type: Spontaneous
  Country: US (occurrence: US)
  Receive Date: 20240514
  Receipt Date: 20240521
  Transmission Date: 20240717
  Serious: No
  Sender: FDA-Public Use
  Company Number: US-AstraZeneca-CH-00621620A

PATIENT
  Sex: Female

DRUGS (3)
  1. ULTOMIRIS [Suspect]
     Active Substance: RAVULIZUMAB-CWVZ
     Indication: Myasthenia gravis
     Dosage: UNK
     Route: 065
     Dates: start: 202308
  2. CELLCEPT [Suspect]
     Active Substance: MYCOPHENOLATE MOFETIL
     Indication: CREST syndrome
     Dosage: UNK
     Route: 065
  3. HUMAN IMMUNOGLOBULIN G [Concomitant]
     Active Substance: HUMAN IMMUNOGLOBULIN G
     Indication: Product used for unknown indication
     Dosage: UNK
     Route: 065

REACTIONS (4)
  - Eyelid ptosis [Recovered/Resolved]
  - Fatigue [Recovered/Resolved]
  - Therapeutic product effect incomplete [Unknown]
  - Musculoskeletal pain [Unknown]
